FAERS Safety Report 8898544 (Version 1)
Quarter: 2012Q4

REPORT INFORMATION
  Report Type: 
  Country: US (occurrence: US)
  Receive Date: 20121108
  Receipt Date: 20121108
  Transmission Date: 20130627
  Serious: No
  Sender: FDA-Public Use
  Company Number: US-AMGEN-USASP2012023779

PATIENT
  Age: 57 Year
  Sex: Female

DRUGS (2)
  1. ENBREL [Suspect]
     Indication: RHEUMATOID ARTHRITIS
     Dosage: 50 mg, qwk
     Dates: start: 20111123
  2. METHOTREXATE [Concomitant]
     Dosage: 1 mg, qwk
     Dates: start: 201111

REACTIONS (5)
  - Increased upper airway secretion [Recovered/Resolved]
  - Sinus headache [Recovered/Resolved]
  - Respiratory tract congestion [Recovered/Resolved]
  - Pain in extremity [Recovered/Resolved]
  - Cough [Recovered/Resolved]
